FAERS Safety Report 20423416 (Version 4)
Quarter: 2022Q1

REPORT INFORMATION
  Report Type: Spontaneous
  Country: JP (occurrence: JP)
  Receive Date: 20220203
  Receipt Date: 20220329
  Transmission Date: 20220423
  Serious: Yes (Hospitalization, Other)
  Sender: FDA-Public Use
  Company Number: JP-MSD-2201JPN003480JAA

PATIENT
  Age: 79 Year
  Sex: Female
  Weight: 45 kg

DRUGS (9)
  1. KEYTRUDA [Suspect]
     Active Substance: PEMBROLIZUMAB
     Indication: Non-small cell lung cancer stage IV
     Dosage: 200 MILLIGRAM, Q3W
     Route: 041
     Dates: start: 20201027, end: 20210413
  2. TEPMETKO [Suspect]
     Active Substance: TEPOTINIB HYDROCHLORIDE
     Indication: Non-small cell lung cancer stage IV
     Dosage: 500 MILLIGRAM, QD
     Route: 065
     Dates: start: 20210512, end: 20210517
  3. TEPMETKO [Suspect]
     Active Substance: TEPOTINIB HYDROCHLORIDE
     Dosage: 250 MILLIGRAM, QD
     Route: 065
     Dates: start: 20210527
  4. TEPMETKO [Suspect]
     Active Substance: TEPOTINIB HYDROCHLORIDE
     Dosage: 250 MILLIGRAM, TIW
     Route: 065
  5. CORTRIL [Concomitant]
     Active Substance: HYDROCORTISONE
     Indication: Adrenal insufficiency
     Dosage: 30 MILLIGRAM
     Route: 048
     Dates: start: 20201023, end: 20201026
  6. CORTRIL [Concomitant]
     Active Substance: HYDROCORTISONE
     Dosage: 20 MILLIGRAM
     Route: 048
     Dates: start: 20201027, end: 20201117
  7. CORTRIL [Concomitant]
     Active Substance: HYDROCORTISONE
     Dosage: 15 MILLIGRAM
     Route: 048
     Dates: start: 20201118, end: 20210323
  8. CORTRIL [Concomitant]
     Active Substance: HYDROCORTISONE
     Dosage: 10 MILLIGRAM
     Route: 048
     Dates: start: 20200324, end: 20210517
  9. CORTRIL [Concomitant]
     Active Substance: HYDROCORTISONE
     Dosage: 15 MILLIGRAM
     Route: 048
     Dates: start: 20210518, end: 20220218

REACTIONS (3)
  - Renal impairment [Recovering/Resolving]
  - Malignant neoplasm progression [Recovering/Resolving]
  - Diarrhoea [Recovering/Resolving]

NARRATIVE: CASE EVENT DATE: 20201031
